FAERS Safety Report 6700811-3 (Version None)
Quarter: 2010Q2

REPORT INFORMATION
  Report Type: 
  Country: None (occurrence: None)
  Receive Date: 20100426
  Receipt Date: 20100413
  Transmission Date: 20101027
  Serious: Yes (Other)
  Sender: FDA-Public Use
  Company Number: JP-1181537

PATIENT
  Age: 71 Year
  Sex: Female

DRUGS (4)
  1. MOXIFLOXACIN HCL [Suspect]
     Indication: CONJUNCTIVITIS
     Dosage: 1 GTT QID OS OPHTHALMIC
     Route: 047
     Dates: start: 20100410, end: 20100410
  2. NORVASC [Concomitant]
  3. DOXAZOSIN MESYLATE [Concomitant]
  4. ETIZOLAM [Concomitant]

REACTIONS (2)
  - GENERALISED OEDEMA [None]
  - RASH GENERALISED [None]
